FAERS Safety Report 24390395 (Version 1)
Quarter: 2024Q4

REPORT INFORMATION
  Report Type: Spontaneous
  Country: US (occurrence: US)
  Receive Date: 20241003
  Receipt Date: 20241003
  Transmission Date: 20250114
  Serious: No
  Sender: ABBVIE
  Company Number: US-ABBVIE-5946784

PATIENT
  Sex: Female

DRUGS (1)
  1. LINACLOTIDE [Suspect]
     Active Substance: LINACLOTIDE
     Indication: Constipation
     Route: 048

REACTIONS (6)
  - Gastrointestinal disorder [Unknown]
  - Connective tissue disorder [Unknown]
  - Off label use [Unknown]
  - Constipation [Unknown]
  - Gastrointestinal motility disorder [Unknown]
  - Unevaluable event [Unknown]
